FAERS Safety Report 13897067 (Version 1)
Quarter: 2017Q3

REPORT INFORMATION
  Report Type: Spontaneous
  Country: JP (occurrence: JP)
  Receive Date: 20170823
  Receipt Date: 20170823
  Transmission Date: 20171127
  Serious: Yes (Death, Other)
  Sender: FDA-Public Use
  Company Number: JP-BAYER-2017-158941

PATIENT
  Age: 88 Year
  Sex: Female

DRUGS (3)
  1. ACETYLSALICYLIC ACID({=100 MG) [Suspect]
     Active Substance: ASPIRIN
     Indication: HYPERTENSION
  2. ACETYLSALICYLIC ACID({=100 MG) [Suspect]
     Active Substance: ASPIRIN
     Indication: MYOCARDIAL ISCHAEMIA
  3. ALTEPLASE. [Interacting]
     Active Substance: ALTEPLASE

REACTIONS (4)
  - Drug administration error [None]
  - Cerebral haemorrhage [Fatal]
  - Potentiating drug interaction [None]
  - Labelled drug-drug interaction medication error [None]
